FAERS Safety Report 8353091-X (Version None)
Quarter: 2012Q2

REPORT INFORMATION
  Report Type: 
  Country: None (occurrence: None)
  Receive Date: 20120511
  Receipt Date: 20120508
  Transmission Date: 20120825
  Serious: Yes (Other)
  Sender: FDA-Public Use
  Company Number: US-PFIZER INC-2012113105

PATIENT

DRUGS (3)
  1. EFFIENT [Concomitant]
     Dosage: UNK
  2. LIPITOR [Suspect]
     Dosage: 80 MG, 1X/DAY
  3. NORVASC [Suspect]
     Dosage: 5 MG, 1X/DAY

REACTIONS (1)
  - DIABETES MELLITUS [None]
